FAERS Safety Report 16793801 (Version 1)
Quarter: 2019Q3

REPORT INFORMATION
  Report Type: Spontaneous
  Country: ES (occurrence: ES)
  Receive Date: 20190911
  Receipt Date: 20190911
  Transmission Date: 20191005
  Serious: Yes (Other)
  Sender: FDA-Public Use
  Company Number: ES-ASTRAZENECA-2019SF25818

PATIENT
  Age: 7 Year
  Sex: Female
  Weight: 28 kg

DRUGS (2)
  1. MINOXIDIL (782A) [Suspect]
     Active Substance: MINOXIDIL
     Route: 048
     Dates: start: 20190502, end: 20190530
  2. OP2455 - OMEPRAZOLE MAGISTRAL FORMULA [Suspect]
     Active Substance: OMEPRAZOLE
     Indication: HELICOBACTER INFECTION
     Dosage: DOSE OF 2 ML/DAY OF SOLUTION OF 10 MG/ML
     Route: 048
     Dates: start: 20190502, end: 20190530

REACTIONS (2)
  - Hypertrichosis [Not Recovered/Not Resolved]
  - Product formulation issue [Recovered/Resolved]

NARRATIVE: CASE EVENT DATE: 20190502
